FAERS Safety Report 6918233-9 (Version None)
Quarter: 2010Q3

REPORT INFORMATION
  Report Type: 
  Country: None (occurrence: None)
  Receive Date: 20100809
  Receipt Date: 20100809
  Transmission Date: 20110219
  Serious: No
  Sender: FDA-Public Use
  Company Number: None

PATIENT

DRUGS (14)
  1. MEMANTINE HCL [Suspect]
     Dosage: 1170 MG
     Dates: start: 20100502
  2. ACTIFED COLD AND ALLERGY [Concomitant]
  3. B-1 [Concomitant]
  4. DECADRON [Concomitant]
  5. FAMOTIDINE [Concomitant]
  6. FOLIC ACID [Concomitant]
  7. NOVOLIN R [Concomitant]
  8. KEPPRA [Concomitant]
  9. LASIX [Concomitant]
  10. LIPITOR [Concomitant]
  11. MULTI-VITAMIN [Concomitant]
  12. NOVAHISTINE [Concomitant]
  13. PROVIGIL [Concomitant]
  14. CEPHALEXIN [Concomitant]

REACTIONS (3)
  - BLOOD GLUCOSE INCREASED [None]
  - BRAIN MASS [None]
  - HEMIPLEGIA [None]
